FAERS Safety Report 23377839 (Version 1)
Quarter: 2024Q1

REPORT INFORMATION
  Report Type: Spontaneous
  Country: CN (occurrence: CN)
  Receive Date: 20240108
  Receipt Date: 20240108
  Transmission Date: 20240410
  Serious: Yes (Other)
  Sender: FDA-Public Use
  Company Number: CN-BAYER-2024A000451

PATIENT
  Age: 31 Year
  Sex: Female

DRUGS (2)
  1. YAZ [Suspect]
     Active Substance: DROSPIRENONE\ETHINYL ESTRADIOL
     Indication: Abnormal uterine bleeding
     Dosage: 1 DF, BID
     Route: 048
     Dates: start: 20231110, end: 20231211
  2. YAZ [Suspect]
     Active Substance: DROSPIRENONE\ETHINYL ESTRADIOL
     Indication: Heavy menstrual bleeding

REACTIONS (3)
  - Suicidal ideation [Recovering/Resolving]
  - Anxiety [Recovering/Resolving]
  - Off label use [None]

NARRATIVE: CASE EVENT DATE: 20231110
